FAERS Safety Report 5027904-3 (Version None)
Quarter: 2006Q2

REPORT INFORMATION
  Report Type: 
  Country: None (occurrence: None)
  Receive Date: 20060616
  Receipt Date: 20060605
  Transmission Date: 20061013
  Serious: Yes (Other)
  Sender: FDA-Public Use
  Company Number: US-MERCK-0606USA00709

PATIENT
  Age: 59 Year
  Sex: Male

DRUGS (5)
  1. ZOCOR [Suspect]
     Indication: BLOOD CHOLESTEROL INCREASED
     Route: 048
     Dates: start: 20040101, end: 20050101
  2. ZOCOR [Suspect]
     Route: 048
     Dates: start: 20050101, end: 20060602
  3. NIASPAN [Concomitant]
     Route: 065
  4. CORGARD [Concomitant]
     Route: 065
  5. MICARDIS HCT [Concomitant]
     Route: 065

REACTIONS (3)
  - DEAFNESS [None]
  - INFLAMMATION [None]
  - TINNITUS [None]
